FAERS Safety Report 25277320 (Version 1)
Quarter: 2025Q2

REPORT INFORMATION
  Report Type: Spontaneous
  Country: GB (occurrence: None)
  Receive Date: 20250507
  Receipt Date: 20250507
  Transmission Date: 20250716
  Serious: Yes (Hospitalization)
  Sender: ORION
  Company Number: GB-Orion Corporation ORION PHARMA-UTRE2011-0271

PATIENT
  Age: 40 Year
  Sex: Female

DRUGS (8)
  1. METHOTREXATE [Interacting]
     Active Substance: METHOTREXATE
     Indication: Product used for unknown indication
  2. DOXYCYCLINE [Interacting]
     Active Substance: DOXYCYCLINE
     Indication: Product used for unknown indication
     Dates: start: 20111103, end: 20111103
  3. FOLIC ACID [Concomitant]
     Active Substance: FOLIC ACID
  4. CO-DYDRAMOL [Concomitant]
     Active Substance: ACETAMINOPHEN\DIHYDROCODEINE
     Dosage: 2 EVERY 4 HOURS
  5. ALBUTEROL [Concomitant]
     Active Substance: ALBUTEROL
  6. AMOXICILLIN [Concomitant]
     Active Substance: AMOXICILLIN
  7. BRINZOLAMIDE [Concomitant]
     Active Substance: BRINZOLAMIDE
     Dosage: STRENGTH: 10 MG/ML
  8. BIMATOPROST\TIMOLOL [Concomitant]
     Active Substance: BIMATOPROST\TIMOLOL

REACTIONS (2)
  - Drug interaction [Recovering/Resolving]
  - Toxicity to various agents [Recovering/Resolving]

NARRATIVE: CASE EVENT DATE: 20111103
